FAERS Safety Report 19715630 (Version 1)
Quarter: 2021Q3

REPORT INFORMATION
  Report Type: Spontaneous
  Country: CA (occurrence: CA)
  Receive Date: 20210818
  Receipt Date: 20210818
  Transmission Date: 20211014
  Serious: Yes (Other)
  Sender: FDA-Public Use
  Company Number: CA-TEVA-2021-CA-1941923

PATIENT
  Age: 14 Year
  Sex: Male

DRUGS (1)
  1. NOVAMOXIN [Suspect]
     Active Substance: AMOXICILLIN
     Indication: OTITIS MEDIA
     Dosage: 1500 MILLIGRAM DAILY;
     Route: 048

REACTIONS (2)
  - Blood glucose abnormal [Recovered/Resolved]
  - Seizure [Recovered/Resolved]
